FAERS Safety Report 9359232 (Version 1)
Quarter: 2013Q2

REPORT INFORMATION
  Report Type: Spontaneous
  Country: US (occurrence: US)
  Receive Date: 20130620
  Receipt Date: 20130620
  Transmission Date: 20140414
  Serious: No
  Sender: FDA-Public Use
  Company Number: US-PFIZER INC-2013181230

PATIENT
  Age: 19 Year
  Sex: Female

DRUGS (2)
  1. TOVIAZ [Suspect]
     Dosage: 8 MG, UNK
  2. LO LOESTRIN FE [Interacting]
     Indication: CONTRACEPTION
     Dosage: UNK

REACTIONS (2)
  - Drug interaction [Unknown]
  - Alopecia [Unknown]
